FAERS Safety Report 4718323-5 (Version None)
Quarter: 2005Q3

REPORT INFORMATION
  Report Type: 
  Country: None (occurrence: None)
  Receive Date: 20050718
  Receipt Date: 20040927
  Transmission Date: 20060218
  Serious: Yes (Other)
  Sender: FDA-Public Use
  Company Number: 239570

PATIENT
  Age: 67 Year
  Sex: Female

DRUGS (4)
  1. ACTIVELLA (NORESTHISTERONE ACETATE, ESTRADIOL HEMIHYDRATE) FILM-COATED [Suspect]
     Indication: HORMONE REPLACEMENT THERAPY
     Dosage: ORAL
     Route: 048
     Dates: start: 20030301, end: 20030801
  2. PREMARIN [Concomitant]
  3. MEDROXYPROGESTERONE ACETATE [Concomitant]
  4. PREMPRO [Concomitant]

REACTIONS (1)
  - BREAST CANCER [None]
